FAERS Safety Report 12027529 (Version 1)
Quarter: 2016Q1

REPORT INFORMATION
  Report Type: Report from Study
  Country: US (occurrence: US)
  Receive Date: 20160207
  Receipt Date: 20160207
  Transmission Date: 20160526
  Serious: No
  Sender: FDA-Public Use
  Company Number: US-ABBVIE-15K-163-1491989-00

PATIENT
  Age: 39 Year
  Sex: Male
  Weight: 99.88 kg

DRUGS (2)
  1. MULTIVITAMIN [Concomitant]
     Active Substance: VITAMINS
     Indication: PRODUCT USED FOR UNKNOWN INDICATION
  2. HUMIRA [Suspect]
     Active Substance: ADALIMUMAB
     Indication: PSORIASIS
     Route: 058
     Dates: start: 2015

REACTIONS (5)
  - Dry throat [Not Recovered/Not Resolved]
  - Dysphonia [Not Recovered/Not Resolved]
  - Sinusitis [Not Recovered/Not Resolved]
  - Cough [Not Recovered/Not Resolved]
  - Headache [Not Recovered/Not Resolved]

NARRATIVE: CASE EVENT DATE: 20151023
